FAERS Safety Report 9213171 (Version 1)
Quarter: 2013Q1

REPORT INFORMATION
  Report Type: Spontaneous
  Country: US (occurrence: None)
  Receive Date: 20120820
  Receipt Date: 20120820
  Transmission Date: 20140127
  Serious: No
  Sender: FDA-Public Use
  Company Number: 1000030694

PATIENT
  Age: 66 Year
  Sex: Female

DRUGS (7)
  1. VIIBRYD (VILAZODONE)(10 MILLIGRAM, TABLETS) [Suspect]
     Indication: ANXIETY
     Route: 048
     Dates: start: 20120515, end: 20120521
  2. VIIBRYD (VILAZODONE)(10 MILLIGRAM, TABLETS) [Suspect]
     Indication: DEPRESSION
     Route: 048
     Dates: start: 20120515, end: 20120521
  3. VIIBRYD (VILAZODONE) [Suspect]
     Indication: ANXIETY
     Route: 048
     Dates: start: 20120522, end: 20120523
  4. VIIBRYD (VILAZODONE) [Suspect]
     Indication: DEPRESSION
     Route: 048
     Dates: start: 20120522, end: 20120523
  5. ATIVAN (LORAZEPAM) (1 MILLIGRAM) (LORAZEPAM) [Concomitant]
  6. DIOVAN (VALSARTAN) (VALSARTAN) [Concomitant]
  7. SIMVASTATIN (SIMVASTATIN) (SIMVASTATIN) [Concomitant]

REACTIONS (6)
  - Nausea [None]
  - Decreased appetite [None]
  - Anxiety [None]
  - Asthenia [None]
  - Burning sensation [None]
  - Restless legs syndrome [None]
